FAERS Safety Report 17444367 (Version 1)
Quarter: 2020Q1

REPORT INFORMATION
  Report Type: Spontaneous
  Country: US (occurrence: US)
  Receive Date: 20200221
  Receipt Date: 20200221
  Transmission Date: 20200409
  Serious: Yes (Life-Threatening)
  Sender: FDA-Public Use
  Company Number: None

PATIENT
  Age: 23 Year
  Sex: Male
  Weight: 51.5 kg

DRUGS (1)
  1. TRIKAFTA [Suspect]
     Active Substance: ELEXACAFTOR\IVACAFTOR\TEZACAFTOR
     Indication: CYSTIC FIBROSIS
     Route: 048

REACTIONS (11)
  - Oedema peripheral [None]
  - Infective pulmonary exacerbation of cystic fibrosis [None]
  - Atelectasis [None]
  - Right ventricular hypertrophy [None]
  - Pulmonary hypertension [None]
  - Right ventricular systolic pressure decreased [None]
  - Bronchial secretion retention [None]
  - PCO2 increased [None]
  - Right ventricular dysfunction [None]
  - Bronchiectasis [None]
  - Lung opacity [None]

NARRATIVE: CASE EVENT DATE: 20200208
